FAERS Safety Report 8802153 (Version 1)
Quarter: 2012Q4

REPORT INFORMATION
  Report Type: 
  Country: US (occurrence: US)
  Receive Date: 20120921
  Receipt Date: 20120921
  Transmission Date: 20130627
  Serious: Yes (Other)
  Sender: FDA-Public Use
  Company Number: US-TEVA-359864USA

PATIENT
  Age: 68 Year
  Sex: Male

DRUGS (2)
  1. CARBIDOPA AND LEVODOPA [Suspect]
     Indication: PARKINSON^S DISEASE
     Dosage: 50mg/200mg four times a day
     Route: 065
  2. MIDODRINE [Concomitant]
     Route: 065

REACTIONS (2)
  - Delusion of replacement [Unknown]
  - Delusion of replacement [Unknown]
